FAERS Safety Report 24908122 (Version 1)
Quarter: 2025Q1

REPORT INFORMATION
  Report Type: Report from Study
  Country: IN (occurrence: IN)
  Receive Date: 20250131
  Receipt Date: 20250131
  Transmission Date: 20250409
  Serious: Yes (Other)
  Sender: ROCHE
  Company Number: IN-ROCHE-10000189417

PATIENT
  Age: 52 Year
  Sex: Female

DRUGS (1)
  1. PHESGO [Suspect]
     Active Substance: HYALURONIDASE-ZZXF\PERTUZUMAB\TRASTUZUMAB
     Indication: HER2 positive breast cancer
     Route: 058
     Dates: start: 20241009

REACTIONS (4)
  - Off label use [Unknown]
  - Ill-defined disorder [Unknown]
  - Metastases to lymph nodes [Unknown]
  - Breast neoplasm [Unknown]
